FAERS Safety Report 20175588 (Version 1)
Quarter: 2021Q4

REPORT INFORMATION
  Report Type: Spontaneous
  Country: US (occurrence: None)
  Receive Date: 20211209
  Receipt Date: 20211209
  Transmission Date: 20220303
  Serious: Yes (Hospitalization)
  Sender: FDA-Public Use
  Company Number: None

PATIENT
  Age: 63 Year
  Sex: Female

DRUGS (19)
  1. AUSTEDO [Suspect]
     Active Substance: DEUTETRABENAZINE
     Indication: Huntington^s disease
     Dosage: FREQUENCY : DAILY;?
     Route: 048
     Dates: start: 20210707
  2. UMECLIDINIUM BROMIDE\VILANTEROL TRIFENATATE [Concomitant]
     Active Substance: UMECLIDINIUM BROMIDE\VILANTEROL TRIFENATATE
  3. ASMANEX [Concomitant]
     Active Substance: MOMETASONE FUROATE
  4. BENZTROPINE [Concomitant]
     Active Substance: BENZTROPINE
  5. CARAFATE [Concomitant]
     Active Substance: SUCRALFATE
  6. Chlorphenir [Concomitant]
  7. Ensure HP [Concomitant]
  8. EX-LAX ULTRA [Concomitant]
  9. GABAPENTIN [Concomitant]
     Active Substance: GABAPENTIN
  10. Ipratoprium/Sol Albuter [Concomitant]
  11. LOSARTAN POTASSIUM [Concomitant]
     Active Substance: LOSARTAN POTASSIUM
  12. Milk of Magn Sus [Concomitant]
  13. PANTOPRAZOLE [Concomitant]
     Active Substance: PANTOPRAZOLE
  14. PRAZOSIN HYDROCHLORIDE [Concomitant]
     Active Substance: PRAZOSIN HYDROCHLORIDE
  15. PROAIR HFA [Concomitant]
     Active Substance: ALBUTEROL SULFATE
  16. Robitussin Sus [Concomitant]
  17. Stool Softnr [Concomitant]
  18. VENLAFAXINE [Concomitant]
     Active Substance: VENLAFAXINE HYDROCHLORIDE
  19. ZOFRAN [Concomitant]
     Active Substance: ONDANSETRON HYDROCHLORIDE

REACTIONS (2)
  - Shoulder operation [None]
  - Muscle rupture [None]

NARRATIVE: CASE EVENT DATE: 20210707
